FAERS Safety Report 9422718 (Version 2)
Quarter: 2013Q3

REPORT INFORMATION
  Report Type: Spontaneous
  Country: US (occurrence: None)
  Receive Date: 20130724
  Receipt Date: 20130726
  Transmission Date: 20140515
  Serious: Yes (Hospitalization)
  Sender: FDA-Public Use
  Company Number: 2013-1111

PATIENT
  Age: 65 Year
  Sex: 0

DRUGS (3)
  1. KYPROLIS [Suspect]
     Indication: PLASMA CELL MYELOMA
     Dates: start: 20130321
  2. B12 (CYANOCOBALAMAN) (CYANOCOBALMIN) [Concomitant]
  3. ZOMETA (ZOLEDRONIC ACID) (ZOLEDRONIC ACID0 [Concomitant]

REACTIONS (7)
  - Anaemia [None]
  - Neutropenia [None]
  - Agitation [None]
  - Myoclonus [None]
  - Tumour marker increased [None]
  - Renal failure [None]
  - Depression [None]
